FAERS Safety Report 7009105-2 (Version None)
Quarter: 2010Q3

REPORT INFORMATION
  Report Type: 
  Country: None (occurrence: None)
  Receive Date: 20100921
  Receipt Date: 20100907
  Transmission Date: 20110219
  Serious: Yes (Death, Hospitalization)
  Sender: FDA-Public Use
  Company Number: B0675058A

PATIENT
  Sex: 0

DRUGS (1)
  1. EPOPROSTENOL SODIUM [Suspect]
     Indication: PULMONARY ARTERIAL HYPERTENSION

REACTIONS (4)
  - CARDIO-RESPIRATORY ARREST [None]
  - HYPOTENSION [None]
  - INCORRECT DRUG ADMINISTRATION RATE [None]
  - OVERDOSE [None]
